FAERS Safety Report 9540911 (Version 1)
Quarter: 2013Q3

REPORT INFORMATION
  Report Type: Spontaneous
  Country: US (occurrence: US)
  Receive Date: 20130921
  Receipt Date: 20130921
  Transmission Date: 20140515
  Serious: No
  Sender: FDA-Public Use
  Company Number: US-US-EMD SERONO, INC.-7236996

PATIENT
  Age: 48 Year
  Sex: Female

DRUGS (2)
  1. REBIF [Suspect]
     Indication: MULTIPLE SCLEROSIS
     Route: 058
     Dates: start: 201106
  2. VALACICLOVIR [Concomitant]
     Indication: ORAL HERPES

REACTIONS (2)
  - Diplopia [Recovered/Resolved]
  - Vertigo [Not Recovered/Not Resolved]
